FAERS Safety Report 7942715 (Version 5)
Quarter: 2012Q4

REPORT INFORMATION
  Report Type: 
  Country: US (occurrence: US)
  Receive Date: 20110512
  Receipt Date: 20120928
  Transmission Date: 20130627
  Serious: Yes (Hospitalization, Other)
  Sender: FDA-Public Use
  Company Number: US-ACTELION-A-US2011-48305

PATIENT
  Age: 66 Year
  Sex: Female

DRUGS (4)
  1. TRACLEER [Suspect]
     Indication: PULMONARY ARTERIAL HYPERTENSION
     Dosage: UNK
     Route: 048
  2. ADCIRCA [Concomitant]
  3. COUMADIN [Concomitant]
  4. OXYGEN [Concomitant]

REACTIONS (11)
  - Cardiac fibrillation [Unknown]
  - Renal failure [Unknown]
  - Pneumonia [Unknown]
  - Urinary tract infection [Unknown]
  - Pyrexia [Unknown]
  - Weight decreased [Unknown]
  - Pulmonary oedema [Recovering/Resolving]
  - Haemorrhage [Recovering/Resolving]
  - Anaemia [Unknown]
  - Nasopharyngitis [Unknown]
  - Dyspnoea [Unknown]
